FAERS Safety Report 16388389 (Version 1)
Quarter: 2019Q2

REPORT INFORMATION
  Report Type: Spontaneous
  Country: US (occurrence: US)
  Receive Date: 20190601
  Receipt Date: 20190601
  Transmission Date: 20190711
  Serious: Yes (Hospitalization)
  Sender: FDA-Public Use
  Company Number: None

PATIENT
  Age: 70 Year
  Sex: Male
  Weight: 110.25 kg

DRUGS (1)
  1. JARDIANCE [Suspect]
     Active Substance: EMPAGLIFLOZIN
     Indication: TYPE 2 DIABETES MELLITUS
     Dosage: ?          QUANTITY:1 TABLET(S);?
     Route: 048
     Dates: start: 20190304, end: 20190304

REACTIONS (8)
  - Chills [None]
  - Confusional state [None]
  - Abdominal discomfort [None]
  - Malaise [None]
  - Affect lability [None]
  - Nausea [None]
  - Flushing [None]
  - Asthenia [None]

NARRATIVE: CASE EVENT DATE: 20190304
